FAERS Safety Report 6657232-1 (Version None)
Quarter: 2010Q1

REPORT INFORMATION
  Report Type: 
  Country: None (occurrence: None)
  Receive Date: 20100330
  Receipt Date: 20100319
  Transmission Date: 20100710
  Serious: Yes (Hospitalization)
  Sender: FDA-Public Use
  Company Number: US-NOVOPROD-305940

PATIENT
  Sex: Female
  Weight: 55.329 kg

DRUGS (2)
  1. NOVOLOG [Suspect]
     Indication: TYPE 2 DIABETES MELLITUS
     Dosage: UNK
     Route: 058
     Dates: start: 20100301
  2. GLUCOPHAGE [Concomitant]
     Indication: TYPE 2 DIABETES MELLITUS
     Dosage: UNK

REACTIONS (4)
  - BLOOD GLUCOSE INCREASED [None]
  - BRONCHOPNEUMONIA [None]
  - INJECTION SITE HAEMATOMA [None]
  - TRANSIENT ISCHAEMIC ATTACK [None]
